FAERS Safety Report 10177214 (Version 1)
Quarter: 2014Q2

REPORT INFORMATION
  Report Type: Spontaneous
  Country: ES (occurrence: ES)
  Receive Date: 20140516
  Receipt Date: 20140516
  Transmission Date: 20141212
  Serious: Yes (Life-Threatening, Hospitalization, Other)
  Sender: FDA-Public Use
  Company Number: ES-ASTRAZENECA-2014SE33168

PATIENT
  Sex: Male

DRUGS (1)
  1. TICAGRELOR [Suspect]
     Route: 048

REACTIONS (2)
  - Coronary artery thrombosis [Unknown]
  - Drug dose omission [Unknown]
